FAERS Safety Report 15481111 (Version 3)
Quarter: 2018Q4

REPORT INFORMATION
  Report Type: Report from Study
  Country: US (occurrence: US)
  Receive Date: 20181010
  Receipt Date: 20181119
  Transmission Date: 20190205
  Serious: Yes (Other)
  Sender: FDA-Public Use
  Company Number: US-SA-2018SA278665

PATIENT
  Age: 75 Year
  Sex: Female

DRUGS (2)
  1. ALIROCUMAB [Suspect]
     Active Substance: ALIROCUMAB
     Dosage: UNK, QOW
     Route: 058
     Dates: start: 20180811
  2. ASPIRIN (E.C.) [Concomitant]
     Active Substance: ASPIRIN

REACTIONS (6)
  - High density lipoprotein increased [Unknown]
  - Muscle injury [Unknown]
  - Cough [Unknown]
  - Therapeutic response decreased [Unknown]
  - Injection site bruising [Unknown]
  - Knee arthroplasty [Unknown]
